FAERS Safety Report 10055680 (Version 2)
Quarter: 2014Q4

REPORT INFORMATION
  Report Type: Other
  Country: CO (occurrence: CO)
  Receive Date: 20140403
  Receipt Date: 20141216
  Transmission Date: 20150528
  Serious: Yes (Hospitalization, Other)
  Sender: FDA-Public Use
  Company Number: CO-SHIRE-CO201400898

PATIENT
  Age: 3 Year
  Sex: Female
  Weight: 9 kg

DRUGS (1)
  1. VPRIV [Suspect]
     Active Substance: VELAGLUCERASE ALFA
     Indication: GAUCHER^S DISEASE
     Dosage: 800 IU (2 VIALS), OTHER(EVERY 15 DAYS)
     Route: 041
     Dates: start: 20130901

REACTIONS (3)
  - Incorrect drug administration duration [Not Recovered/Not Resolved]
  - Cardiopulmonary failure [Unknown]
  - Drug dose omission [Recovered/Resolved]

NARRATIVE: CASE EVENT DATE: 20130901
